FAERS Safety Report 7634321-6 (Version None)
Quarter: 2011Q3

REPORT INFORMATION
  Report Type: 
  Country: None (occurrence: None)
  Receive Date: 20110725
  Receipt Date: 20110725
  Transmission Date: 20111222
  Serious: Yes (Other)
  Sender: FDA-Public Use
  Company Number: CH-PFIZER INC-2011152584

PATIENT
  Age: 63 Year
  Sex: Female
  Weight: 86 kg

DRUGS (6)
  1. VARENICLINE TARTRATE [Suspect]
     Indication: SMOKING CESSATION THERAPY
     Dosage: 0.5 MG, 2X/DAY
     Route: 048
     Dates: start: 20090602, end: 20090626
  2. LEVOTHYROXINE SODIUM [Concomitant]
     Dosage: 0.05 MG, 1X/DAY
  3. LIVIAL [Concomitant]
     Dosage: 2.5 MG, 2X/DAY
  4. ASPIRIN [Concomitant]
     Dosage: 100 MG, 1X/DAY
  5. METFORMIN HCL [Concomitant]
     Dosage: 500 MG, 2X/DAY
  6. VOLTAREN [Concomitant]
     Dosage: 20 MG, 1X/DAY

REACTIONS (1)
  - DEPRESSION SUICIDAL [None]
